FAERS Safety Report 20801203 (Version 2)
Quarter: 2022Q2

REPORT INFORMATION
  Report Type: Spontaneous
  Country: BR (occurrence: BR)
  Receive Date: 20220509
  Receipt Date: 20220510
  Transmission Date: 20220721
  Serious: Yes (Other)
  Sender: FDA-Public Use
  Company Number: BR-ORGANON-O2205BRA000469

PATIENT
  Age: 48 Year
  Sex: Female

DRUGS (1)
  1. ETONOGESTREL [Suspect]
     Active Substance: ETONOGESTREL
     Dosage: 1 IMPLANT, IN RIGHT ARM
     Route: 059
     Dates: start: 20220413

REACTIONS (3)
  - Implant site necrosis [Unknown]
  - Device dislocation [Not Recovered/Not Resolved]
  - Implant site infection [Unknown]

NARRATIVE: CASE EVENT DATE: 20220401
